FAERS Safety Report 12774797 (Version 1)
Quarter: 2016Q3

REPORT INFORMATION
  Report Type: Report from Study
  Country: US (occurrence: US)
  Receive Date: 20160923
  Receipt Date: 20160923
  Transmission Date: 20161109
  Serious: Yes (Hospitalization)
  Sender: FDA-Public Use
  Company Number: US-PFIZER INC-2016440462

PATIENT
  Age: 64 Year
  Sex: Male
  Weight: 96 kg

DRUGS (7)
  1. LOSARTAN AND HYDROCHLOROTHIAZIDE [Concomitant]
     Active Substance: HYDROCHLOROTHIAZIDE\LOSARTAN POTASSIUM
     Dosage: [HYDROCHLOROTHIAZIDE 12.5 MG]/[ LOSARTAN POTASSIUM 100MG], QD
     Route: 048
  2. XELJANZ [Suspect]
     Active Substance: TOFACITINIB CITRATE
     Indication: RHEUMATOID ARTHRITIS
     Dosage: 5 MG, 2X/DAY
     Route: 048
     Dates: start: 20150527
  3. PREDNISONE. [Concomitant]
     Active Substance: PREDNISONE
     Indication: RHEUMATOID ARTHRITIS
     Dosage: 5 MG, UNK
  4. FISH OIL [Concomitant]
     Active Substance: FISH OIL
  5. VITRON-C [Concomitant]
     Dosage: 1 TAB, AT BEDTIME
     Route: 048
  6. MULTIVITAMINS [Concomitant]
     Active Substance: VITAMINS
  7. AMBIEN [Concomitant]
     Active Substance: ZOLPIDEM TARTRATE
     Dosage: 10 MG, BEDTIME AS NEEDED
     Route: 048

REACTIONS (2)
  - Arthritis bacterial [Recovered/Resolved]
  - Pneumonia klebsiella [Recovered/Resolved]

NARRATIVE: CASE EVENT DATE: 20160229
